FAERS Safety Report 13377161 (Version 3)
Quarter: 2018Q2

REPORT INFORMATION
  Report Type: Report from Study
  Country: IT (occurrence: IT)
  Receive Date: 20170328
  Receipt Date: 20180508
  Transmission Date: 20180711
  Serious: Yes (Hospitalization)
  Sender: FDA-Public Use
  Company Number: IT-MYLANLABS-2017M1018806

PATIENT
  Age: 45 Year
  Sex: Male

DRUGS (3)
  1. LANSOPRAZOLE. [Suspect]
     Active Substance: LANSOPRAZOLE
     Indication: DRUG ABUSE
     Dosage: 4 DF, TOTAL
     Route: 048
  2. ALCOHOL. [Concomitant]
     Active Substance: ALCOHOL
     Indication: PRODUCT USED FOR UNKNOWN INDICATION
  3. DILTIAZEM. [Suspect]
     Active Substance: DILTIAZEM
     Indication: DRUG ABUSE
     Dosage: 17 DF, TOTAL, 15-20 TABLETS
     Route: 048

REACTIONS (4)
  - Sopor [Unknown]
  - Intentional overdose [Unknown]
  - Nausea [Unknown]
  - Drug abuse [Unknown]

NARRATIVE: CASE EVENT DATE: 20160906
